FAERS Safety Report 12065893 (Version 1)
Quarter: 2016Q1

REPORT INFORMATION
  Report Type: Spontaneous
  Country: US (occurrence: None)
  Receive Date: 20160210
  Receipt Date: 20160210
  Transmission Date: 20160526
  Serious: Yes (Other)
  Sender: FDA-Public Use
  Company Number: None

PATIENT
  Age: 65 Year
  Sex: Male
  Weight: 127.01 kg

DRUGS (5)
  1. LAVOX/FLUVOXAMINE [Concomitant]
  2. CLONAZEPAM. [Suspect]
     Active Substance: CLONAZEPAM
     Indication: ANXIETY
     Dosage: 1 MG 3/DAY 1 1/2 BED 1/2 AM 12  1/22 1/2 # MOUTH
     Route: 048
     Dates: start: 20010101
  3. KLONOPIN [Concomitant]
     Active Substance: CLONAZEPAM
  4. CARBATROL/CARBAMAZEPINE [Concomitant]
  5. SENIOR VITAMIN/MINERAL [Concomitant]

REACTIONS (7)
  - Wheezing [None]
  - Surgery [None]
  - Headache [None]
  - Product substitution issue [None]
  - Cough [None]
  - Pulmonary congestion [None]
  - Sinus operation [None]

NARRATIVE: CASE EVENT DATE: 20160126
